FAERS Safety Report 24885340 (Version 1)
Quarter: 2025Q1

REPORT INFORMATION
  Report Type: Spontaneous
  Country: CN (occurrence: CN)
  Receive Date: 20250124
  Receipt Date: 20250124
  Transmission Date: 20250409
  Serious: Yes (Other)
  Sender: DR REDDYS
  Company Number: None

PATIENT
  Age: 26 Year
  Sex: Female

DRUGS (3)
  1. PANTOPRAZOLE SODIUM [Suspect]
     Active Substance: PANTOPRAZOLE SODIUM
     Indication: Abdominal distension
     Dosage: PANTOPRAZOLE SODIUM ENTERIC-COATED TABLETS?40MG,QD
     Route: 048
     Dates: start: 20241206, end: 20241216
  2. TRIMEBUTINE [Suspect]
     Active Substance: TRIMEBUTINE
     Indication: Abdominal distension
     Dosage: 0.2G,TID
     Route: 048
     Dates: start: 20241206, end: 20241211
  3. TEPRENONE [Suspect]
     Active Substance: TEPRENONE
     Indication: Abdominal distension
     Dosage: 50 MG, TID
     Route: 048
     Dates: start: 20241206, end: 20241212

REACTIONS (1)
  - Henoch-Schonlein purpura [Recovering/Resolving]

NARRATIVE: CASE EVENT DATE: 20241207
